FAERS Safety Report 9405005 (Version 1)
Quarter: 2013Q3

REPORT INFORMATION
  Report Type: Spontaneous
  Country: IT (occurrence: IT)
  Receive Date: 20130717
  Receipt Date: 20130717
  Transmission Date: 20140515
  Serious: Yes (Other)
  Sender: FDA-Public Use
  Company Number: IT-TEVA-418420ISR

PATIENT
  Age: 48 Year
  Sex: Male
  Weight: 46 kg

DRUGS (4)
  1. METOTRASSATO TEVA [Suspect]
     Indication: BLADDER CANCER
     Route: 042
     Dates: start: 20130115, end: 20130429
  2. VELBE [Suspect]
     Indication: BLADDER CANCER
     Route: 042
     Dates: start: 20130115, end: 20130429
  3. SOLDESAM [Concomitant]
     Dosage: 8 MILLIGRAM DAILY;
     Route: 042
     Dates: start: 20130115, end: 20130429
  4. ONDANSETRONE HIKMA [Concomitant]
     Dosage: 8 MILLIGRAM DAILY;
     Route: 042
     Dates: start: 20130115, end: 20130429

REACTIONS (6)
  - Constipation [Unknown]
  - Dyspnoea [Unknown]
  - Fatigue [Unknown]
  - Formication [Unknown]
  - Pain in extremity [Unknown]
  - Stomatitis [Unknown]
